FAERS Safety Report 22089494 (Version 1)
Quarter: 2023Q1

REPORT INFORMATION
  Report Type: Spontaneous
  Country: US (occurrence: US)
  Receive Date: 20230313
  Receipt Date: 20230313
  Transmission Date: 20230417
  Serious: Yes (Other)
  Sender: FDA-Public Use
  Company Number: US-ORGANON-O2202USA002293

PATIENT
  Sex: Female

DRUGS (1)
  1. NEXPLANON [Suspect]
     Active Substance: ETONOGESTREL
     Indication: Contraception
     Dosage: 1 IMPLANT IN LEFT UPPER INNER ARM
     Route: 058
     Dates: start: 20140702, end: 20170517

REACTIONS (5)
  - Abnormal uterine bleeding [Unknown]
  - Arthralgia [Unknown]
  - Hypomenorrhoea [Unknown]
  - Intermenstrual bleeding [Unknown]
  - Amenorrhoea [Unknown]

NARRATIVE: CASE EVENT DATE: 20150101
